FAERS Safety Report 14282582 (Version 5)
Quarter: 2018Q3

REPORT INFORMATION
  Report Type: Spontaneous
  Country: BR (occurrence: BR)
  Receive Date: 20171213
  Receipt Date: 20180713
  Transmission Date: 20181010
  Serious: Yes (Hospitalization, Other)
  Sender: FDA-Public Use
  Company Number: BR-BIOMARINAP-BR-2017-116399

PATIENT
  Age: 4 Year
  Sex: Male
  Weight: 29 kg

DRUGS (1)
  1. ALDURAZYME [Suspect]
     Active Substance: LARONIDASE
     Indication: MUCOPOLYSACCHARIDOSIS I
     Dosage: 8 DF, QOW
     Route: 041
     Dates: start: 20130801

REACTIONS (10)
  - Influenza [Unknown]
  - Pyrexia [Unknown]
  - Body temperature decreased [Unknown]
  - Tracheitis [Unknown]
  - Tracheostomy [Recovering/Resolving]
  - Oxygen saturation decreased [Not Recovered/Not Resolved]
  - Depressed mood [Not Recovered/Not Resolved]
  - Malaise [Not Recovered/Not Resolved]
  - Morose [Not Recovered/Not Resolved]
  - Inappropriate schedule of drug administration [Unknown]

NARRATIVE: CASE EVENT DATE: 201509
